FAERS Safety Report 20121301 (Version 1)
Quarter: 2021Q4

REPORT INFORMATION
  Report Type: Spontaneous
  Country: US (occurrence: None)
  Receive Date: 20211124
  Receipt Date: 20211124
  Transmission Date: 20220303
  Serious: Yes (Hospitalization)
  Sender: FDA-Public Use
  Company Number: None

PATIENT
  Age: 76 Year
  Sex: Male

DRUGS (1)
  1. TOBRAMYCIN [Suspect]
     Active Substance: TOBRAMYCIN
     Indication: Bronchiectasis
     Dosage: OTHER FREQUENCY : QD X 28D ON/OFF;?
     Route: 055
     Dates: start: 202106

REACTIONS (3)
  - Haemoptysis [None]
  - Bronchiectasis [None]
  - Condition aggravated [None]

NARRATIVE: CASE EVENT DATE: 20211117
